FAERS Safety Report 9647606 (Version 1)
Quarter: 2013Q4

REPORT INFORMATION
  Report Type: Report from Study
  Country: US (occurrence: US)
  Receive Date: 20131028
  Receipt Date: 20131028
  Transmission Date: 20140711
  Serious: No
  Sender: FDA-Public Use
  Company Number: US-B.I. PHARMACEUTICALS,INC./RIDGEFIELD-2013-BI-34055BI

PATIENT
  Age: 80 Year
  Sex: Male

DRUGS (2)
  1. GILOTRIF [Suspect]
     Indication: NON-SMALL CELL LUNG CANCER
     Route: 048
     Dates: start: 20131014
  2. TARCEVA [Concomitant]

REACTIONS (2)
  - Rash [Not Recovered/Not Resolved]
  - Oral pain [Not Recovered/Not Resolved]
